FAERS Safety Report 7980680-4 (Version None)
Quarter: 2011Q4

REPORT INFORMATION
  Report Type: 
  Country: None (occurrence: None)
  Receive Date: 20111214
  Receipt Date: 20111130
  Transmission Date: 20120403
  Serious: Yes (Other)
  Sender: FDA-Public Use
  Company Number: US-WATSON-2011-21362

PATIENT
  Age: 20 Year
  Sex: Male

DRUGS (1)
  1. HYDROXOCOBALAMIN [Suspect]
     Indication: POISONING
     Dosage: 5 G, UNKNOWN
     Route: 042

REACTIONS (2)
  - LABORATORY TEST INTERFERENCE [None]
  - FALSE POSITIVE INVESTIGATION RESULT [None]
